FAERS Safety Report 8010440-X (Version None)
Quarter: 2011Q4

REPORT INFORMATION
  Report Type: 
  Country: None (occurrence: None)
  Receive Date: 20111228
  Receipt Date: 20111221
  Transmission Date: 20120403
  Serious: Yes (Death)
  Sender: FDA-Public Use
  Company Number: JP-BAYER-2011-105155

PATIENT
  Age: 84 Year
  Sex: Female
  Weight: 60 kg

DRUGS (13)
  1. LOSARTAN POTASSIUM [Concomitant]
     Dosage: DAILY DOSE 50 MG
     Route: 048
  2. NEXAVAR [Suspect]
     Indication: HEPATIC NEOPLASM MALIGNANT
     Dosage: 400
     Route: 048
     Dates: start: 20111012, end: 20111015
  3. KOLANTYL [Concomitant]
     Dosage: DAILY DOSE 3 G
     Route: 048
     Dates: end: 20111020
  4. GEFANIL [Concomitant]
     Dosage: DAILY DOSE 150 MG
     Route: 048
     Dates: end: 20111020
  5. LIVACT [Concomitant]
     Dosage: DAILY DOSE 3 DF
     Route: 048
     Dates: end: 20111020
  6. UREPEARL [Concomitant]
     Indication: PROPHYLAXIS
     Dosage: UNK
     Route: 061
     Dates: start: 20111012, end: 20111017
  7. PHYSIO [Concomitant]
     Dosage: DAILY DOSE 1500 ML
     Route: 042
     Dates: end: 20111020
  8. URSO 250 [Concomitant]
     Dosage: DAILY DOSE 600 MG
     Route: 048
     Dates: end: 20111020
  9. AMLODIPINE [Concomitant]
     Dosage: DAILY DOSE 5 MG
     Route: 048
     Dates: end: 20111020
  10. LASIX [Concomitant]
     Dosage: DAILY DOSE 40 MG
     Route: 048
     Dates: end: 20111020
  11. BROCIN-CODEINE [Concomitant]
     Dosage: DAILY DOSE 6 ML
     Route: 048
     Dates: start: 20111014, end: 20111020
  12. NEXAVAR [Suspect]
     Dosage: 400
     Route: 048
     Dates: start: 20111016, end: 20111017
  13. ADOFEED [Concomitant]
     Dosage: DAILY DOSE 1 DF
     Route: 062
     Dates: end: 20111020

REACTIONS (4)
  - RESPIRATORY FAILURE [None]
  - NAUSEA [None]
  - DYSPHAGIA [None]
  - HEPATIC NEOPLASM MALIGNANT [None]
